FAERS Safety Report 5244821-4 (Version None)
Quarter: 2007Q1

REPORT INFORMATION
  Report Type: 
  Country: None (occurrence: None)
  Receive Date: 20070216
  Receipt Date: 20070206
  Transmission Date: 20070707
  Serious: Yes (Other)
  Sender: FDA-Public Use
  Company Number: CHNY2007DE00649

PATIENT
  Age: 37 Year
  Sex: Female
  Weight: 60 kg

DRUGS (4)
  1. LAMISIL [Suspect]
     Indication: TINEA PEDIS
     Dosage: TOPICAL
     Dates: start: 20070101
  2. MST (MORPHINE SULFATE) [Concomitant]
  3. AMOXICILLIN [Concomitant]
  4. GELOMYRTOL FORTE (CINEOLE, EXTRACTUM TILIAE, MYRTOL, TILIA SPP. EXTRAC [Concomitant]

REACTIONS (3)
  - BLISTER [None]
  - HYPERSENSITIVITY [None]
  - WOUND SECRETION [None]
